FAERS Safety Report 25809198 (Version 1)
Quarter: 2025Q3

REPORT INFORMATION
  Report Type: Spontaneous
  Country: US (occurrence: US)
  Receive Date: 20250916
  Receipt Date: 20250916
  Transmission Date: 20251020
  Serious: No
  Sender: ROCHE
  Company Number: US-ROCHE-10000354691

PATIENT
  Age: 28 Year
  Sex: Female

DRUGS (1)
  1. EVRYSDI [Suspect]
     Active Substance: RISDIPLAM
     Indication: Spinal muscular atrophy
     Route: 065
     Dates: start: 20240801

REACTIONS (4)
  - Ankle fracture [Unknown]
  - Urinary retention [Recovered/Resolved]
  - Osteogenesis imperfecta [Unknown]
  - Pelvic floor muscle weakness [Unknown]

NARRATIVE: CASE EVENT DATE: 20250630
